FAERS Safety Report 23159690 (Version 4)
Quarter: 2024Q2

REPORT INFORMATION
  Report Type: Report from Study
  Country: GB (occurrence: GB)
  Receive Date: 20231108
  Receipt Date: 20240522
  Transmission Date: 20240716
  Serious: Yes (Other)
  Sender: FDA-Public Use
  Company Number: GB-SANDOZ-SDZ2023GB051866

PATIENT
  Sex: Male

DRUGS (1)
  1. HYRIMOZ [Suspect]
     Active Substance: ADALIMUMAB-ADAZ
     Indication: Psoriasis
     Dosage: 40 MG, Q2W, EOW
     Route: 058
     Dates: start: 20231003

REACTIONS (3)
  - Lower respiratory tract infection [Unknown]
  - Incorrect dose administered [Unknown]
  - Product quality issue [Unknown]
